FAERS Safety Report 9804560 (Version 2)
Quarter: 2014Q1

REPORT INFORMATION
  Report Type: Report from Study
  Country: FR (occurrence: FR)
  Receive Date: 20140108
  Receipt Date: 20140113
  Transmission Date: 20141002
  Serious: Yes (Hospitalization)
  Sender: FDA-Public Use
  Company Number: FR-BRISTOL-MYERS SQUIBB COMPANY-19967397

PATIENT
  Age: 65 Year
  Sex: Female
  Weight: 70 kg

DRUGS (8)
  1. BLINDED: NIVOLUMAB [Suspect]
     Indication: METASTATIC MALIGNANT MELANOMA
     Route: 042
     Dates: start: 20131129
  2. IPILIMUMAB [Suspect]
     Indication: METASTATIC MALIGNANT MELANOMA
     Route: 042
     Dates: start: 20131129
  3. BLINDED: PLACEBO [Suspect]
     Indication: METASTATIC MALIGNANT MELANOMA
     Route: 042
     Dates: start: 20131129
  4. CORTICOSTEROID [Concomitant]
     Dosage: BOLUS CORTICOSTEROID
  5. ELISOR [Concomitant]
  6. ZOVIRAX [Concomitant]
  7. TEGELINE [Concomitant]
  8. SOLU-MEDROL [Concomitant]

REACTIONS (1)
  - Radiculopathy [Not Recovered/Not Resolved]
